FAERS Safety Report 9942349 (Version 1)
Quarter: 2014Q1

REPORT INFORMATION
  Report Type: Report from Study
  Country: RU (occurrence: RU)
  Receive Date: 20140303
  Receipt Date: 20140303
  Transmission Date: 20141002
  Serious: Yes (Death)
  Sender: FDA-Public Use
  Company Number: RU-SA-2014SA020356

PATIENT
  Age: 61 Year
  Sex: Male

DRUGS (1)
  1. PLAVIX [Suspect]
     Indication: THROMBOSIS PROPHYLAXIS
     Route: 048
     Dates: start: 20130723, end: 20140126

REACTIONS (2)
  - Hypertensive heart disease [Fatal]
  - Cardiovascular disorder [Fatal]
